FAERS Safety Report 5907557-X (Version None)
Quarter: 2008Q3

REPORT INFORMATION
  Report Type: 
  Country: None (occurrence: None)
  Receive Date: 20080929
  Receipt Date: 20080919
  Transmission Date: 20090109
  Serious: Yes (Hospitalization)
  Sender: FDA-Public Use
  Company Number: 98010

PATIENT
  Age: 45 Year
  Sex: Female
  Weight: 70 kg

DRUGS (3)
  1. ACETAMINOPHEN [Suspect]
     Indication: DRUG USE FOR UNKNOWN INDICATION
     Dosage: 100 G / UNK / ORAL
     Route: 048
  2. ALPRAZOLAM [Concomitant]
  3. DIAZEPAM [Concomitant]

REACTIONS (6)
  - HEPATOTOXICITY [None]
  - ILEUS PARALYTIC [None]
  - IMPAIRED GASTRIC EMPTYING [None]
  - LEUKOPENIA [None]
  - OVERDOSE [None]
  - THROMBOCYTOPENIA [None]
